FAERS Safety Report 6555559-5 (Version None)
Quarter: 2010Q1

REPORT INFORMATION
  Report Type: 
  Country: None (occurrence: None)
  Receive Date: 20100128
  Receipt Date: 20100119
  Transmission Date: 20100710
  Serious: Yes (Other)
  Sender: FDA-Public Use
  Company Number: US-ASTRAZENECA-2010SE02349

PATIENT
  Sex: Female

DRUGS (2)
  1. ARIMIDEX [Suspect]
     Route: 048
  2. TAMOXIFEN CITRATE [Suspect]
     Route: 048

REACTIONS (2)
  - DRUG INEFFECTIVE [None]
  - METASTASES TO BONE [None]
